FAERS Safety Report 20110608 (Version 2)
Quarter: 2021Q4

REPORT INFORMATION
  Report Type: Report from Study
  Country: FR (occurrence: FR)
  Receive Date: 20211124
  Receipt Date: 20211201
  Transmission Date: 20220303
  Serious: Yes (Hospitalization)
  Sender: FDA-Public Use
  Company Number: FR-SERVIER-S21013052

PATIENT

DRUGS (10)
  1. PEGASPARGASE [Suspect]
     Active Substance: PEGASPARGASE
     Indication: Acute lymphocytic leukaemia
     Dosage: 1400 IU, D4, D43
     Route: 042
     Dates: start: 20210910
  2. PEGASPARGASE [Suspect]
     Active Substance: PEGASPARGASE
     Dosage: 1400 IU, D4, D43
     Route: 042
     Dates: start: 20211018
  3. TN UNSPECIFIED [Concomitant]
     Indication: Acute lymphocytic leukaemia
     Dosage: 0.9 MG, D1, D8, D15, D43, D50
     Route: 042
     Dates: start: 20210831
  4. TN UNSPECIFIED [Concomitant]
     Indication: Acute lymphocytic leukaemia
     Dosage: 6 MG, D1 TO D7, D14 TO D21
     Route: 048
     Dates: start: 20210831, end: 20210920
  5. TN UNSPECIFIED [Concomitant]
     Indication: Acute lymphocytic leukaemia
     Dosage: 15 MG, UNKNOWN FREQUENCY
     Route: 042
     Dates: start: 20210831, end: 20210917
  6. TN UNSPECIFIED [Concomitant]
     Indication: Acute lymphocytic leukaemia
     Dosage: 12 MG, D4, D31
     Route: 037
     Dates: start: 20210903, end: 20211004
  7. TN UNSPECIFIED [Concomitant]
     Indication: Acute lymphocytic leukaemia
     Dosage: 30 MG, D4, D31
     Route: 037
     Dates: start: 20210903, end: 20211004
  8. TN UNSPECIFIED [Concomitant]
     Dosage: 43 MG, D31 TO D34, D38 TO D41
     Route: 042
     Dates: start: 20211004, end: 20211013
  9. TN UNSPECIFIED [Concomitant]
     Indication: Acute lymphocytic leukaemia
     Dosage: 15 MG, D4, D31
     Route: 037
     Dates: start: 20210903, end: 20211004
  10. TN UNSPECIFIED [Concomitant]
     Indication: Acute lymphocytic leukaemia
     Dosage: 35 MG, D29 TO D42
     Route: 048
     Dates: start: 20211001, end: 20211014

REACTIONS (4)
  - Diarrhoea [Recovered/Resolved]
  - Abdominal pain [Recovered/Resolved]
  - Gastroenteritis [Recovering/Resolving]
  - Aplasia [Recovering/Resolving]

NARRATIVE: CASE EVENT DATE: 20210920
